FAERS Safety Report 14293661 (Version 2)
Quarter: 2018Q1

REPORT INFORMATION
  Report Type: Spontaneous
  Country: US (occurrence: US)
  Receive Date: 20171216
  Receipt Date: 20180308
  Transmission Date: 20180509
  Serious: No
  Sender: FDA-Public Use
  Company Number: US-ASTRAZENECA-2017SF23192

PATIENT
  Age: 94 Year
  Sex: Female

DRUGS (4)
  1. DUONEB [Concomitant]
     Active Substance: ALBUTEROL SULFATE\IPRATROPIUM BROMIDE
     Indication: ASTHMA
     Route: 055
  2. SYMBICORT [Suspect]
     Active Substance: BUDESONIDE\FORMOTEROL FUMARATE DIHYDRATE
     Indication: INFLAMMATION
     Dosage: 160MCG/4.5MCG, 2 PUFFS TWICE DAILY
     Route: 055
     Dates: start: 201711
  3. DUONEB [Concomitant]
     Active Substance: ALBUTEROL SULFATE\IPRATROPIUM BROMIDE
     Indication: INFLAMMATION
     Route: 055
  4. SYMBICORT [Suspect]
     Active Substance: BUDESONIDE\FORMOTEROL FUMARATE DIHYDRATE
     Indication: ASTHMA
     Dosage: 160MCG/4.5MCG, 2 PUFFS TWICE DAILY
     Route: 055
     Dates: start: 201711

REACTIONS (3)
  - Off label use [Unknown]
  - Asthenia [Unknown]
  - Device malfunction [Unknown]
